FAERS Safety Report 24455116 (Version 2)
Quarter: 2024Q4

REPORT INFORMATION
  Report Type: Spontaneous
  Country: DE (occurrence: DE)
  Receive Date: 20241017
  Receipt Date: 20241018
  Transmission Date: 20250114
  Serious: No
  Sender: ROCHE
  Company Number: DE-ROCHE-3486330

PATIENT
  Age: 75 Year
  Sex: Female

DRUGS (8)
  1. RITUXIMAB [Suspect]
     Active Substance: RITUXIMAB
     Indication: Acquired haemophilia
     Dosage: DAYS 1, 8, 15, AND 22
     Route: 042
  2. EMICIZUMAB [Suspect]
     Active Substance: EMICIZUMAB
     Indication: Acquired haemophilia
     Route: 065
  3. PREDNISOLONE [Concomitant]
     Active Substance: PREDNISOLONE
  4. PREDNISOLONE [Concomitant]
     Active Substance: PREDNISOLONE
     Dosage: FOR A MAXIMUM OF 4-6 WEEKS (FOLLOWED BY TAPERED WITHDRAWAL)
     Route: 048
  5. DEXAMETHASONE [Concomitant]
     Active Substance: DEXAMETHASONE
     Dosage: ON DAYS 1, 8, 15, AND 22
     Route: 048
  6. METHOTREXATE [Concomitant]
     Active Substance: METHOTREXATE
  7. RAMIPRIL [Concomitant]
     Active Substance: RAMIPRIL
  8. HYDROCHLOROTHIAZIDE [Concomitant]
     Active Substance: HYDROCHLOROTHIAZIDE

REACTIONS (2)
  - Off label use [Unknown]
  - No adverse event [Unknown]
